FAERS Safety Report 25105865 (Version 1)
Quarter: 2025Q1

REPORT INFORMATION
  Report Type: Spontaneous
  Country: DE (occurrence: DE)
  Receive Date: 20250321
  Receipt Date: 20250321
  Transmission Date: 20250409
  Serious: Yes (Hospitalization)
  Sender: FRESENIUS KABI
  Company Number: DE-ROCHE-10000135093

PATIENT
  Age: 68 Year
  Sex: Male
  Weight: 80 kg

DRUGS (4)
  1. CARBOPLATIN [Suspect]
     Active Substance: CARBOPLATIN
     Indication: Small cell lung cancer
     Dates: start: 20240722
  2. TECENTRIQ [Suspect]
     Active Substance: ATEZOLIZUMAB
     Indication: Small cell lung cancer
     Route: 042
     Dates: start: 20240723, end: 20250226
  3. TECENTRIQ [Suspect]
     Active Substance: ATEZOLIZUMAB
     Dates: start: 20240722
  4. ETOPOSIDE [Suspect]
     Active Substance: ETOPOSIDE
     Indication: Small cell lung cancer
     Dates: start: 20240722

REACTIONS (7)
  - Dizziness [Recovering/Resolving]
  - Ill-defined disorder [Recovering/Resolving]
  - Sensory disturbance [Recovering/Resolving]
  - Dysstasia [Recovering/Resolving]
  - Alopecia [Unknown]
  - Pruritus [Recovered/Resolved]
  - Dry skin [Unknown]

NARRATIVE: CASE EVENT DATE: 20241001
